FAERS Safety Report 21091803 (Version 2)
Quarter: 2022Q3

REPORT INFORMATION
  Report Type: Other
  Country: CN (occurrence: None)
  Receive Date: 20220717
  Receipt Date: 20220804
  Transmission Date: 20221027
  Serious: Yes (Other)
  Sender: FDA-Public Use
  Company Number: CN-ROCHE-1976803

PATIENT
  Age: 48 Year
  Sex: Male
  Weight: 70 kg

DRUGS (1)
  1. AVASTIN [Suspect]
     Active Substance: BEVACIZUMAB
     Indication: Non-small cell lung cancer metastatic
     Route: 041
     Dates: start: 20161124

REACTIONS (7)
  - Osteomyelitis [Unknown]
  - General physical health deterioration [Unknown]
  - Toothache [Unknown]
  - Protein urine present [Unknown]
  - Pain in extremity [Unknown]
  - Renal impairment [Unknown]
  - Vestibular disorder [Unknown]

NARRATIVE: CASE EVENT DATE: 20190401
